FAERS Safety Report 7820908-4 (Version None)
Quarter: 2011Q4

REPORT INFORMATION
  Report Type: 
  Country: None (occurrence: None)
  Receive Date: 20111018
  Receipt Date: 20111013
  Transmission Date: 20120403
  Serious: Yes (Hospitalization)
  Sender: FDA-Public Use
  Company Number: US-GLAXOSMITHKLINE-A0948970A

PATIENT
  Age: 53 Year
  Sex: Female

DRUGS (13)
  1. CRESTOR [Concomitant]
  2. LORAZEPAM [Concomitant]
  3. LANTUS [Concomitant]
  4. MULTI-VITAMIN [Concomitant]
  5. ASPIRIN [Concomitant]
  6. ADVAIR DISKUS 100/50 [Suspect]
     Indication: CHRONIC OBSTRUCTIVE PULMONARY DISEASE
     Dosage: 1PUFF TWICE PER DAY
     Route: 055
  7. FOLIC ACID [Concomitant]
  8. NOVOLOG [Concomitant]
  9. SYNTHROID [Concomitant]
  10. WATER PILL [Concomitant]
  11. CITALOPRAM [Concomitant]
  12. VITAMIN B1 TAB [Concomitant]
  13. KLOR-CON [Concomitant]

REACTIONS (4)
  - CHEST PAIN [None]
  - ANGIOGRAM [None]
  - DIABETIC KETOACIDOSIS [None]
  - BRONCHITIS [None]
